FAERS Safety Report 6159446-6 (Version None)
Quarter: 2009Q2

REPORT INFORMATION
  Report Type: 
  Country: None (occurrence: None)
  Receive Date: 20090417
  Receipt Date: 20090414
  Transmission Date: 20091009
  Serious: Yes (Hospitalization)
  Sender: FDA-Public Use
  Company Number: GB-ABBOTT-09P-167-0568087-00

PATIENT
  Age: 86 Year
  Sex: Female

DRUGS (1)
  1. EPILIM [Suspect]
     Indication: CONVULSION
     Route: 048
     Dates: start: 20090206, end: 20090212

REACTIONS (3)
  - ALANINE AMINOTRANSFERASE INCREASED [None]
  - BLOOD ALKALINE PHOSPHATASE INCREASED [None]
  - CHOLESTASIS [None]
